FAERS Safety Report 19593037 (Version 1)
Quarter: 2021Q3

REPORT INFORMATION
  Report Type: Spontaneous
  Country: US (occurrence: US)
  Receive Date: 20210722
  Receipt Date: 20210722
  Transmission Date: 20211014
  Serious: Yes (Other)
  Sender: FDA-Public Use
  Company Number: None

PATIENT
  Age: 44 Year
  Sex: Female
  Weight: 75.4 kg

DRUGS (6)
  1. INSULIN ASPART [Concomitant]
     Active Substance: INSULIN ASPART
  2. FERRLECIT [Suspect]
     Active Substance: SODIUM FERRIC GLUCONATE COMPLEX
     Indication: ANAEMIA
     Route: 041
     Dates: start: 20210710, end: 20210710
  3. PANTOPRAZOLE [Concomitant]
     Active Substance: PANTOPRAZOLE
  4. SUCRA LFATE [Concomitant]
  5. ZOFRAN [Concomitant]
     Active Substance: ONDANSETRON HYDROCHLORIDE
  6. SODIUM FLUSH [Concomitant]

REACTIONS (2)
  - Dizziness [None]
  - Blood pressure decreased [None]

NARRATIVE: CASE EVENT DATE: 20210710
